FAERS Safety Report 5330479-2 (Version None)
Quarter: 2007Q2

REPORT INFORMATION
  Report Type: 
  Country: None (occurrence: None)
  Receive Date: 20070521
  Receipt Date: 20070509
  Transmission Date: 20071010
  Serious: Yes (Other)
  Sender: FDA-Public Use
  Company Number: US-PFIZER INC-2007038251

PATIENT
  Sex: Female
  Weight: 90.7 kg

DRUGS (15)
  1. LIPITOR [Suspect]
     Indication: BLOOD CHOLESTEROL INCREASED
     Dates: start: 20050101, end: 20050101
  2. ZETIA [Suspect]
     Indication: BLOOD CHOLESTEROL INCREASED
     Dates: start: 20050101, end: 20050101
  3. ZOMETA [Suspect]
     Indication: OSTEOPOROSIS
     Route: 042
  4. CALCIUM CHLORIDE [Suspect]
     Indication: OSTEOPOROSIS
  5. CALCIUM CHLORIDE [Suspect]
  6. ZESTRIL [Concomitant]
  7. VITAMIN D [Concomitant]
  8. VITAMIN D [Concomitant]
  9. HYDROCHLOROTHIAZIDE [Concomitant]
  10. PROZAC [Concomitant]
  11. RANITIDINE HYDROCHLORIDE [Concomitant]
  12. OTHER COMBINATIONS OF NUTRIENTS [Concomitant]
  13. DILTIAZEM [Concomitant]
  14. KLONOPIN [Concomitant]
  15. OXYCONTIN [Concomitant]

REACTIONS (12)
  - BLOOD PRESSURE INCREASED [None]
  - BODY TEMPERATURE INCREASED [None]
  - COMPRESSION FRACTURE [None]
  - FALL [None]
  - HYPOTENSION [None]
  - MYALGIA [None]
  - NAUSEA [None]
  - RHABDOMYOLYSIS [None]
  - STOMACH DISCOMFORT [None]
  - TENDON RUPTURE [None]
  - VITAMIN D DECREASED [None]
  - WEIGHT INCREASED [None]
